FAERS Safety Report 8345304-5 (Version None)
Quarter: 2012Q2

REPORT INFORMATION
  Report Type: 
  Country: None (occurrence: None)
  Receive Date: 20120504
  Receipt Date: 20120420
  Transmission Date: 20120825
  Serious: Yes (Other)
  Sender: FDA-Public Use
  Company Number: NGX_01023_2012

PATIENT
  Sex: Female
  Weight: 71 kg

DRUGS (7)
  1. QUTENZA [Suspect]
     Indication: COMPLEX REGIONAL PAIN SYNDROME
     Dosage: (0.5 DF, [PATCH, APPLIED TO HAND] TOPICAL)
     Route: 061
     Dates: start: 20111128, end: 20111128
  2. CLONIDINE [Concomitant]
  3. LIDOCAINE [Concomitant]
  4. LIDOCAIN /00033401/ [Concomitant]
  5. METAMIZOL /06276704/ [Concomitant]
  6. NOVAMIN /06276704/ [Concomitant]
  7. LOCAL COOLING [Concomitant]

REACTIONS (6)
  - TEMPERATURE INTOLERANCE [None]
  - APPLICATION SITE PAIN [None]
  - APPLICATION SITE VESICLES [None]
  - DRUG TOLERANCE DECREASED [None]
  - OEDEMA PERIPHERAL [None]
  - NO THERAPEUTIC RESPONSE [None]
